FAERS Safety Report 18265014 (Version 2)
Quarter: 2020Q3

REPORT INFORMATION
  Report Type: Spontaneous
  Country: US (occurrence: US)
  Receive Date: 20200914
  Receipt Date: 20200928
  Transmission Date: 20201103
  Serious: Yes (Hospitalization)
  Sender: FDA-Public Use
  Company Number: US-JNJFOC-A-US2020-203104

PATIENT
  Age: 37 Year
  Sex: Female
  Weight: 84.81 kg

DRUGS (7)
  1. AMITRIPTYLLINE [Suspect]
     Active Substance: AMITRIPTYLINE
     Indication: PRODUCT USED FOR UNKNOWN INDICATION
     Route: 065
  2. AMLODIPINE [Concomitant]
     Active Substance: AMLODIPINE BESYLATE
  3. ADCIRCA [Concomitant]
     Active Substance: TADALAFIL
     Dosage: 40 MG
  4. REMODULIN [Concomitant]
     Active Substance: TREPROSTINIL
     Dosage: UNK
     Dates: end: 20200311
  5. ADEMPAS [Concomitant]
     Active Substance: RIOCIGUAT
  6. OPSUMIT [Suspect]
     Active Substance: MACITENTAN
     Indication: PULMONARY ARTERIAL HYPERTENSION
     Dosage: 10 MG, QD
     Route: 048
     Dates: start: 2016
  7. ORENITRAM [Suspect]
     Active Substance: TREPROSTINIL
     Indication: PRODUCT USED FOR UNKNOWN INDICATION
     Dosage: 12 MG, TID
     Route: 048

REACTIONS (20)
  - Feeling abnormal [Unknown]
  - Nasal congestion [Unknown]
  - Mood swings [Unknown]
  - Therapy change [Recovered/Resolved]
  - Hot flush [Unknown]
  - Decreased appetite [Unknown]
  - Malaise [Unknown]
  - Gastric dilatation [Unknown]
  - Nocturnal dyspnoea [Unknown]
  - Myalgia [Unknown]
  - Palpitations [Unknown]
  - Pain in jaw [Unknown]
  - Dizziness [Unknown]
  - Flushing [Unknown]
  - Medication error [Unknown]
  - Headache [Unknown]
  - Vomiting [Unknown]
  - Feeling hot [Unknown]
  - Dyspnoea exertional [Unknown]
  - Nausea [Unknown]

NARRATIVE: CASE EVENT DATE: 20200317
